FAERS Safety Report 25888471 (Version 1)
Quarter: 2025Q4

REPORT INFORMATION
  Report Type: Spontaneous
  Country: US (occurrence: US)
  Receive Date: 20251007
  Receipt Date: 20251007
  Transmission Date: 20260118
  Serious: No
  Sender: EMERGENT BIOSOLUTIONS
  Company Number: US-EMERGENT BIOSOLUTIONS-25000149

PATIENT
  Sex: Female

DRUGS (2)
  1. NARCAN [Suspect]
     Active Substance: NALOXONE HYDROCHLORIDE
     Indication: Overdose
     Dosage: UNK, 02 DOSES (FOUR SPRAY)
     Route: 045
  2. OXYBATE [Concomitant]
     Active Substance: OXYBATE
     Indication: Product used for unknown indication
     Dosage: UNK
     Route: 065

REACTIONS (10)
  - Agitation [Unknown]
  - Confusional state [Unknown]
  - Incontinence [Unknown]
  - Rash [Unknown]
  - Chest discomfort [Unknown]
  - Lacrimation increased [Unknown]
  - Withdrawal syndrome [Unknown]
  - Tremor [Unknown]
  - Cold sweat [Unknown]
  - Vomiting [Unknown]
